FAERS Safety Report 5989422-5 (Version None)
Quarter: 2008Q4

REPORT INFORMATION
  Report Type: 
  Country: None (occurrence: None)
  Receive Date: 20081210
  Receipt Date: 20081201
  Transmission Date: 20090506
  Serious: Yes (Hospitalization)
  Sender: FDA-Public Use
  Company Number: US-JNJCH-2008056357

PATIENT
  Age: 13 Month
  Sex: Female

DRUGS (2)
  1. DEXTROMETHORPHAN HYDROBROMIDE [Suspect]
     Indication: DRUG USE FOR UNKNOWN INDICATION
     Dosage: TEXT:3.2 MG/KG (FREQUENCY UNSPECIFIED)
     Route: 048
  2. COUGH AND COLD PREPARATIONS [Suspect]
     Indication: DRUG USE FOR UNKNOWN INDICATION
     Dosage: TEXT:UNSPECIFIED
     Route: 065

REACTIONS (3)
  - ACCIDENTAL EXPOSURE [None]
  - LETHARGY [None]
  - WRONG DRUG ADMINISTERED [None]
